FAERS Safety Report 9073367 (Version 1)
Quarter: 2013Q1

REPORT INFORMATION
  Report Type: Report from Study
  Country: US (occurrence: US)
  Receive Date: 20130129
  Receipt Date: 20130129
  Transmission Date: 20140127
  Serious: No
  Sender: FDA-Public Use
  Company Number: US-ABBOTT-12P-163-0936074-00

PATIENT
  Age: 27 Year
  Sex: Male

DRUGS (8)
  1. HUMIRA 40 MG/0.8 ML PEN [Suspect]
     Indication: CROHN^S DISEASE
     Route: 058
     Dates: start: 20120223
  2. SUBOXONE [Concomitant]
     Indication: CROHN^S DISEASE
     Dosage: 8MG/2MG
     Route: 060
  3. SUBOXONE [Concomitant]
     Indication: PAIN
  4. XANAX [Concomitant]
     Indication: PRODUCT USED FOR UNKNOWN INDICATION
     Dosage: 0.5-4MG DAILY AND IS BEING WEANED OFF
  5. ASACOL [Concomitant]
     Indication: PRODUCT USED FOR UNKNOWN INDICATION
     Dosage: 1200 MG TID
  6. IMURAN [Concomitant]
     Indication: CROHN^S DISEASE
     Dosage: EVERYDAY
  7. TYLENOL EXTRA STRENGTH [Concomitant]
     Indication: JOB DISSATISFACTION
     Dosage: 2 OVER THE COUNTER AND ALSO 1 HOUR BEFORE HUMIRA INJECTION
  8. TYLENOL EXTRA STRENGTH [Concomitant]
     Indication: PROPHYLAXIS
     Dosage: 1 HOUR BEFORE HUMIRA INJECTION

REACTIONS (5)
  - Malaise [Not Recovered/Not Resolved]
  - Decreased appetite [Unknown]
  - Abdominal pain [Recovering/Resolving]
  - Fatigue [Not Recovered/Not Resolved]
  - Fatigue [Not Recovered/Not Resolved]
